FAERS Safety Report 20697493 (Version 1)
Quarter: 2022Q2

REPORT INFORMATION
  Report Type: Spontaneous
  Country: None (occurrence: US)
  Receive Date: 20220411
  Receipt Date: 20220411
  Transmission Date: 20220721
  Serious: No
  Sender: FDA-Public Use
  Company Number: US-Mission Pharmacal Company-2127590

PATIENT
  Age: 32 Year
  Sex: Female

DRUGS (1)
  1. THIOLA EC [Suspect]
     Active Substance: TIOPRONIN
     Indication: Nephrolithiasis
     Route: 048
     Dates: start: 20201008

REACTIONS (1)
  - Drug ineffective [Unknown]
